FAERS Safety Report 7646033-3 (Version None)
Quarter: 2011Q3

REPORT INFORMATION
  Report Type: 
  Country: None (occurrence: None)
  Receive Date: 20110801
  Receipt Date: 20110725
  Transmission Date: 20111222
  Serious: Yes (Death, Other)
  Sender: FDA-Public Use
  Company Number: FR-BRISTOL-MYERS SQUIBB COMPANY-15927924

PATIENT
  Age: 78 Year
  Sex: Female

DRUGS (12)
  1. AZACTAM [Suspect]
     Indication: GROIN ABSCESS
     Dosage: POWDER AND SOLVENT FOR SOLUTION FOR INJECTION 1000MG
     Route: 040
     Dates: start: 20110324, end: 20110417
  2. ZYVOX [Suspect]
     Indication: GROIN ABSCESS
     Dosage: FILM COATED TABLET
     Route: 048
     Dates: start: 20110324, end: 20110415
  3. NOVOMIX [Concomitant]
  4. ASPIRIN [Concomitant]
  5. LASIX [Concomitant]
  6. EFFIENT [Concomitant]
  7. EUPRESSYL [Concomitant]
  8. ALLOPURINOL [Concomitant]
  9. RAMIPRIL [Concomitant]
  10. ATORVASTATIN CALCIUM [Concomitant]
  11. IRBESARTAN [Concomitant]
  12. NEBIVOLOL HCL [Concomitant]

REACTIONS (5)
  - CONFUSIONAL STATE [None]
  - AGGRESSION [None]
  - AGITATION [None]
  - HALLUCINATION [None]
  - DELIRIUM [None]
